FAERS Safety Report 4392795-0 (Version None)
Quarter: 2004Q3

REPORT INFORMATION
  Report Type: 
  Country: None (occurrence: None)
  Receive Date: 20040702
  Receipt Date: 20040622
  Transmission Date: 20050211
  Serious: Yes (Other)
  Sender: FDA-Public Use
  Company Number: MAG-2002-0000018

PATIENT

DRUGS (1)
  1. POVIDONE IODINE [Suspect]
     Dosage: 2 TO 5 TIMES PER DAY; TRANSPLACENTAL
     Route: 064

REACTIONS (2)
  - CONGENITAL HYPOTHYROIDISM [None]
  - DRUG EXPOSURE DURING PREGNANCY [None]
